FAERS Safety Report 5214701-9 (Version None)
Quarter: 2006Q4

REPORT INFORMATION
  Report Type: 
  Country: None (occurrence: None)
  Receive Date: 20061107
  Receipt Date: 20060821
  Transmission Date: 20070319
  Serious: No
  Sender: FDA-Public Use
  Company Number: 200615196BWH

PATIENT
  Age: 60 Year
  Sex: Male

DRUGS (5)
  1. LEVITRA [Suspect]
     Indication: ERECTILE DYSFUNCTION
     Dosage: SEE IMAGE, ORAL
     Route: 048
     Dates: start: 20050201
  2. LEVITRA [Suspect]
     Indication: ERECTILE DYSFUNCTION
     Dosage: SEE IMAGE, ORAL
     Route: 048
     Dates: start: 20050801
  3. DIOVAN [Concomitant]
  4. ACTOS [Concomitant]
  5. LITHIUM CARBONATE [Concomitant]

REACTIONS (3)
  - EJACULATION FAILURE [None]
  - EYE PAIN [None]
  - HEADACHE [None]
